FAERS Safety Report 24199901 (Version 1)
Quarter: 2024Q3

REPORT INFORMATION
  Report Type: Spontaneous
  Country: PL (occurrence: PL)
  Receive Date: 20240812
  Receipt Date: 20240812
  Transmission Date: 20241016
  Serious: Yes (Other)
  Sender: PFIZER
  Company Number: None

PATIENT
  Age: 5 Month
  Sex: Female
  Weight: 6.8 kg

DRUGS (4)
  1. LINEZOLID [Suspect]
     Active Substance: LINEZOLID
     Indication: Enterococcal infection
     Dosage: 50 MG, 3X/DAY
     Route: 042
     Dates: start: 20240214, end: 20240219
  2. MEROPENEM [Concomitant]
     Active Substance: MEROPENEM
     Dosage: 200 MG, 3X/DAY
     Route: 042
     Dates: end: 20240219
  3. FLUCONAZOLE [Concomitant]
     Active Substance: FLUCONAZOLE
     Dosage: 1X30MG
     Route: 042
     Dates: end: 20240219
  4. CIPROFLOXACIN [Concomitant]
     Active Substance: CIPROFLOXACIN
     Dosage: 2X50MG
     Route: 042
     Dates: end: 20240219

REACTIONS (7)
  - Drug-induced liver injury [Recovering/Resolving]
  - Lactic acidosis [Recovering/Resolving]
  - Hyperbilirubinaemia [Recovering/Resolving]
  - Blood lactate dehydrogenase abnormal [Recovering/Resolving]
  - Aspartate aminotransferase increased [Recovering/Resolving]
  - Alanine aminotransferase increased [Recovering/Resolving]
  - Off label use [Unknown]

NARRATIVE: CASE EVENT DATE: 20240214
